FAERS Safety Report 13160239 (Version 2)
Quarter: 2017Q3

REPORT INFORMATION
  Report Type: Spontaneous
  Country: US (occurrence: US)
  Receive Date: 20170127
  Receipt Date: 20170929
  Transmission Date: 20171127
  Serious: Yes (Hospitalization, Other)
  Sender: FDA-Public Use
  Company Number: US-BAYER-2017-014643

PATIENT
  Age: 32 Year
  Sex: Male

DRUGS (11)
  1. CALCITRIOL. [Concomitant]
     Active Substance: CALCITRIOL
     Dosage: 2 ?G/D, QD
  2. CALCIUM CITRATE [Concomitant]
     Active Substance: CALCIUM CITRATE
     Dosage: 2.85 G, TID
  3. PANTOPRAZOLE [Suspect]
     Active Substance: PANTOPRAZOLE
     Indication: GASTROOESOPHAGEAL REFLUX DISEASE
     Dosage: 40 MG, UNK
  4. CALCITRIOL. [Concomitant]
     Active Substance: CALCITRIOL
     Dosage: 4 ?G/D, UNK
  5. ALKA-SELTZER HEARTBURN RELIEFCHEWS [Suspect]
     Active Substance: CALCIUM CARBONATE
     Dosage: 3750 MG, TID
     Route: 048
  6. ALKA-SELTZER HEARTBURN RELIEFCHEWS [Suspect]
     Active Substance: CALCIUM CARBONATE
     Dosage: 24 ?G, UNK
     Route: 048
  7. ALKA-SELTZER HEARTBURN RELIEFCHEWS [Suspect]
     Active Substance: CALCIUM CARBONATE
     Dosage: 2500 MG, QD (2,500)
  8. CALCITRIOL. [Concomitant]
     Active Substance: CALCITRIOL
     Dosage: 8 ?G/D, UNK
  9. CALCIUM GLUCONATE. [Concomitant]
     Active Substance: CALCIUM GLUCONATE
     Dosage: UNK
     Route: 042
  10. PANTOPRAZOLE [Suspect]
     Active Substance: PANTOPRAZOLE
     Indication: OESOPHAGEAL MOTILITY DISORDER
     Dosage: 40 MG/D, UNK
  11. ALKA-SELTZER HEARTBURN RELIEFCHEWS [Suspect]
     Active Substance: CALCIUM CARBONATE
     Dosage: 4500 MG, UNK (11,250)

REACTIONS (7)
  - Hypocalcaemia [Recovered/Resolved]
  - Asthenia [None]
  - Treatment noncompliance [Recovered/Resolved]
  - Drug interaction [None]
  - Product use in unapproved indication [None]
  - Paraesthesia [None]
  - Hypoaesthesia oral [None]
